FAERS Safety Report 22163602 (Version 1)
Quarter: 2023Q2

REPORT INFORMATION
  Report Type: Spontaneous
  Country: US (occurrence: US)
  Receive Date: 20230401
  Receipt Date: 20230401
  Transmission Date: 20230721
  Serious: No
  Sender: FDA-Public Use
  Company Number: US-TEVA-2023-US-2868731

PATIENT
  Sex: Female

DRUGS (2)
  1. METHYLPHENIDATE [Suspect]
     Active Substance: METHYLPHENIDATE
     Indication: Product used for unknown indication
     Route: 048
  2. METHYLPHENIDATE [Suspect]
     Active Substance: METHYLPHENIDATE

REACTIONS (2)
  - Drug ineffective [Unknown]
  - Therapeutic response shortened [Unknown]
